FAERS Safety Report 4949633-4 (Version None)
Quarter: 2006Q1

REPORT INFORMATION
  Report Type: 
  Country: None (occurrence: None)
  Receive Date: 20060315
  Receipt Date: 20060223
  Transmission Date: 20060701
  Serious: Yes (Other)
  Sender: FDA-Public Use
  Company Number: US_0502111929

PATIENT
  Sex: Female
  Weight: 95.2 kg

DRUGS (1)
  1. ZYPREXA [Suspect]
     Indication: SCHIZOPHRENIA
     Dates: start: 19990101, end: 20010101

REACTIONS (13)
  - ALOPECIA [None]
  - ARTHRALGIA [None]
  - BREAST INFECTION [None]
  - DIABETES MELLITUS [None]
  - DIABETIC COMA [None]
  - DIABETIC KETOACIDOSIS [None]
  - FUNGAL INFECTION [None]
  - GROIN INFECTION [None]
  - HYPERTENSION [None]
  - PNEUMONIA [None]
  - TARDIVE DYSKINESIA [None]
  - TINEA PEDIS [None]
  - WEIGHT INCREASED [None]
